FAERS Safety Report 8299202-6 (Version None)
Quarter: 2012Q2

REPORT INFORMATION
  Report Type: 
  Country: None (occurrence: None)
  Receive Date: 20120418
  Receipt Date: 20120418
  Transmission Date: 20120825
  Serious: Yes (Disabling)
  Sender: FDA-Public Use
  Company Number: None

PATIENT
  Sex: Female
  Weight: 61.2356 kg

DRUGS (1)
  1. NEXIUM [Suspect]
     Dosage: ONCE DAILY
     Dates: start: 19940101, end: 20110101

REACTIONS (3)
  - SPINAL FRACTURE [None]
  - BONE DENSITY DECREASED [None]
  - FRACTURE [None]
